FAERS Safety Report 7636164-6 (Version None)
Quarter: 2011Q3

REPORT INFORMATION
  Report Type: 
  Country: None (occurrence: None)
  Receive Date: 20110722
  Receipt Date: 20110722
  Transmission Date: 20111222
  Serious: No
  Sender: FDA-Public Use
  Company Number: None

PATIENT
  Age: 59 Year
  Sex: Female
  Weight: 56.6996 kg

DRUGS (1)
  1. ACTONEL [Suspect]
     Indication: OSTEOPOROSIS
     Dosage: 35 MG 1X WEEK  6/26   7/3

REACTIONS (4)
  - COUGH [None]
  - IRRITABILITY [None]
  - PHARYNGEAL INFLAMMATION [None]
  - HEADACHE [None]
